FAERS Safety Report 8766659 (Version 1)
Quarter: 2012Q4

REPORT INFORMATION
  Report Type: 
  Country: US (occurrence: US)
  Receive Date: 20120904
  Receipt Date: 20120904
  Transmission Date: 20130627
  Serious: Yes (Hospitalization)
  Sender: FDA-Public Use
  Company Number: US-BAYER-2012-090944

PATIENT
  Age: 28 Year
  Sex: Female
  Weight: 84 kg

DRUGS (6)
  1. YASMIN [Suspect]
  2. YAZ [Suspect]
  3. OCELLA [Suspect]
  4. ALBUTEROL [Concomitant]
     Route: 045
  5. PREDNISONE [Concomitant]
     Dosage: Taper, starting with 60 mg, UNK
     Route: 048
     Dates: start: 20090913
  6. ALBUTEROL WITH ATROVENT [Concomitant]
     Dosage: 2.5/0.5mg
     Route: 045
     Dates: start: 20090913

REACTIONS (1)
  - Cerebral infarction [Recovering/Resolving]
